FAERS Safety Report 7586940-3 (Version None)
Quarter: 2011Q3

REPORT INFORMATION
  Report Type: 
  Country: None (occurrence: None)
  Receive Date: 20110701
  Receipt Date: 20110624
  Transmission Date: 20111222
  Serious: Yes (Other)
  Sender: FDA-Public Use
  Company Number: US-US-EMD SERONO, INC.-7067740

PATIENT
  Sex: Female

DRUGS (3)
  1. REBIF [Suspect]
     Route: 058
     Dates: start: 20100812
  2. REBIF [Suspect]
     Indication: MULTIPLE SCLEROSIS
     Route: 058
  3. TYLENOL-500 [Concomitant]
     Indication: PREMEDICATION

REACTIONS (5)
  - PYREXIA [None]
  - INJECTION SITE PAIN [None]
  - PNEUMONIA [None]
  - PAIN [None]
  - COGNITIVE DISORDER [None]
